FAERS Safety Report 9838845 (Version 2)
Quarter: 2014Q1

REPORT INFORMATION
  Report Type: Report from Study
  Country: US (occurrence: US)
  Receive Date: 20140123
  Receipt Date: 20140123
  Transmission Date: 20141002
  Serious: Yes (Hospitalization)
  Sender: FDA-Public Use
  Company Number: US-SANOFI-AVENTIS-2013SA023835

PATIENT
  Age: 49 Year
  Sex: Male
  Weight: 87.1 kg

DRUGS (4)
  1. DOCETAXEL [Suspect]
     Indication: NEOPLASM MALIGNANT
     Route: 041
     Dates: start: 20121126, end: 20121126
  2. DOCETAXEL [Suspect]
     Indication: NEOPLASM MALIGNANT
     Route: 041
     Dates: start: 20130204, end: 20130204
  3. INVESTIGATIONAL DRUG [Suspect]
     Indication: NEOPLASM MALIGNANT
     Route: 042
     Dates: start: 20121217, end: 20121217
  4. INVESTIGATIONAL DRUG [Suspect]
     Indication: NEOPLASM MALIGNANT
     Route: 042
     Dates: start: 20130204, end: 20130204

REACTIONS (3)
  - Febrile neutropenia [Recovered/Resolved]
  - Deep vein thrombosis [Recovered/Resolved with Sequelae]
  - Cholecystitis [Recovered/Resolved with Sequelae]
